FAERS Safety Report 22282995 (Version 3)
Quarter: 2023Q2

REPORT INFORMATION
  Report Type: Report from Study
  Country: CA (occurrence: CA)
  Receive Date: 20230504
  Receipt Date: 20230614
  Transmission Date: 20230721
  Serious: Yes (Hospitalization)
  Sender: FDA-Public Use
  Company Number: CA-002147023-NVSC2023CA098744

PATIENT
  Age: 73 Year
  Sex: Male

DRUGS (1)
  1. ERELZI [Suspect]
     Active Substance: ETANERCEPT-SZZS
     Indication: Psoriatic arthropathy
     Dosage: 50 MG, QW (PRE FILLED PEN)
     Route: 058
     Dates: start: 20230113

REACTIONS (3)
  - Illness [Unknown]
  - COVID-19 [Unknown]
  - Pneumonia [Unknown]
